FAERS Safety Report 17528171 (Version 1)
Quarter: 2020Q1

REPORT INFORMATION
  Report Type: Spontaneous
  Country: CA (occurrence: CA)
  Receive Date: 20200311
  Receipt Date: 20200311
  Transmission Date: 20200409
  Serious: Yes (Death, Hospitalization, Disabling, Other)
  Sender: FDA-Public Use
  Company Number: CA-009507513-1907CAN011587

PATIENT
  Sex: Male

DRUGS (2)
  1. CUBICIN [Suspect]
     Active Substance: DAPTOMYCIN
     Indication: OSTEOMYELITIS
     Dosage: 800 MILLIGRAM, ONCE DAILY
     Route: 042
     Dates: start: 20180119, end: 20180221
  2. CUBICIN [Suspect]
     Active Substance: DAPTOMYCIN
     Indication: STAPHYLOCOCCAL INFECTION

REACTIONS (15)
  - Lung infiltration [Unknown]
  - Eosinophil count increased [Recovered/Resolved]
  - Acute myocardial infarction [Unknown]
  - Pyrexia [Unknown]
  - Hepatic enzyme abnormal [Unknown]
  - Myocarditis [Unknown]
  - Drug reaction with eosinophilia and systemic symptoms [Unknown]
  - Sepsis [Unknown]
  - Drug hypersensitivity [Unknown]
  - Eosinophilic pneumonia [Unknown]
  - Pleural effusion [Unknown]
  - Acute kidney injury [Fatal]
  - Blood creatine phosphokinase increased [Recovered/Resolved]
  - Acute lung injury [Unknown]
  - Ischaemic hepatitis [Unknown]
